FAERS Safety Report 21192627 (Version 2)
Quarter: 2022Q3

REPORT INFORMATION
  Report Type: Report from Study
  Country: CO (occurrence: CO)
  Receive Date: 20220810
  Receipt Date: 20220924
  Transmission Date: 20221027
  Serious: Yes (Death, Life-Threatening, Hospitalization, Other)
  Sender: FDA-Public Use
  Company Number: CO-ABBVIE-22K-036-4496030-00

PATIENT
  Age: 71 Year
  Sex: Male
  Weight: 63 kg

DRUGS (7)
  1. ZEMPLAR [Suspect]
     Active Substance: PARICALCITOL
     Indication: Hyperparathyroidism secondary
     Route: 042
     Dates: start: 20190415, end: 20220812
  2. ATORVASTATIN [Concomitant]
     Active Substance: ATORVASTATIN
     Indication: Cardiac disorder
     Dosage: UNKNOWN
     Route: 048
     Dates: start: 2012
  3. LORATADINE [Concomitant]
     Active Substance: LORATADINE
     Indication: Cardiac disorder
     Dosage: UNKNOWN
     Route: 048
     Dates: start: 2012
  4. CLONIDINE [Concomitant]
     Active Substance: CLONIDINE
     Indication: Hypertension
     Dosage: UNKNOWN
     Route: 048
     Dates: start: 2012
  5. LOSARTAN [Concomitant]
     Active Substance: LOSARTAN
     Indication: Hypertension
     Dosage: UNKNOWN
     Route: 048
     Dates: start: 2012
  6. AMLODIPINE [Concomitant]
     Active Substance: AMLODIPINE BESYLATE
     Indication: Hypertension
     Dosage: UNKNOWN
     Route: 048
     Dates: start: 2012
  7. ASPIRIN [Concomitant]
     Active Substance: ASPIRIN
     Indication: Cardiac disorder
     Dosage: UNKNOWN
     Route: 048
     Dates: start: 2012

REACTIONS (11)
  - Cardiac disorder [Not Recovered/Not Resolved]
  - Death [Fatal]
  - Respiratory failure [Not Recovered/Not Resolved]
  - Hypotension [Not Recovered/Not Resolved]
  - Abdominal pain upper [Recovering/Resolving]
  - Oxygen saturation decreased [Recovering/Resolving]
  - Cardiac failure [Not Recovered/Not Resolved]
  - Lung disorder [Not Recovered/Not Resolved]
  - Renal failure [Recovering/Resolving]
  - Back pain [Recovering/Resolving]
  - Chest pain [Recovering/Resolving]

NARRATIVE: CASE EVENT DATE: 20190809
